FAERS Safety Report 9421489 (Version 1)
Quarter: 2013Q3

REPORT INFORMATION
  Report Type: Spontaneous
  Country: US (occurrence: US)
  Receive Date: 20130726
  Receipt Date: 20130726
  Transmission Date: 20140515
  Serious: No
  Sender: FDA-Public Use
  Company Number: US-009507513-1307USA010493

PATIENT
  Sex: Female

DRUGS (2)
  1. SAPHRIS [Suspect]
     Indication: BIPOLAR DISORDER
     Dosage: 20 MG, HS
     Route: 060
     Dates: start: 201201, end: 2013
  2. SAPHRIS [Suspect]
     Dosage: 10 MG, HS
     Route: 060
     Dates: start: 2013

REACTIONS (2)
  - Movement disorder [Unknown]
  - Off label use [Unknown]
